FAERS Safety Report 24076335 (Version 1)
Quarter: 2024Q3

REPORT INFORMATION
  Report Type: Spontaneous
  Country: DE (occurrence: DE)
  Receive Date: 20240711
  Receipt Date: 20240711
  Transmission Date: 20241017
  Serious: Yes (Life-Threatening, Other)
  Sender: NOVO NORDISK
  Company Number: DE-NOVOPROD-1251231

PATIENT
  Sex: Male

DRUGS (1)
  1. OZEMPIC [Interacting]
     Active Substance: SEMAGLUTIDE
     Indication: Product used for unknown indication
     Dosage: UNK

REACTIONS (4)
  - Depression suicidal [Unknown]
  - Nerve injury [Unknown]
  - Gait disturbance [Unknown]
  - Drug interaction [Unknown]
